FAERS Safety Report 4578271-0 (Version None)
Quarter: 2005Q1

REPORT INFORMATION
  Report Type: 
  Country: None (occurrence: None)
  Receive Date: 20050209
  Receipt Date: 20050126
  Transmission Date: 20050727
  Serious: Yes (Death, Hospitalization)
  Sender: FDA-Public Use
  Company Number: 2004AL000528

PATIENT
  Age: 17 Year
  Sex: Male

DRUGS (2)
  1. KADIAN [Suspect]
     Dosage: PO
     Route: 048
  2. FENTANYL [Suspect]
     Dosage: PO
     Route: 048

REACTIONS (13)
  - BRAIN OEDEMA [None]
  - CARDIAC ARREST [None]
  - DISSEMINATED INTRAVASCULAR COAGULATION [None]
  - DRUG ABUSER [None]
  - EJECTION FRACTION DECREASED [None]
  - GASTRITIS HAEMORRHAGIC [None]
  - HYPOTONIA [None]
  - MULTIPLE DRUG OVERDOSE [None]
  - PULMONARY CONGESTION [None]
  - PUPIL FIXED [None]
  - SELF-MEDICATION [None]
  - THERAPY NON-RESPONDER [None]
  - URINE OUTPUT DECREASED [None]
